FAERS Safety Report 6048575-3 (Version None)
Quarter: 2009Q1

REPORT INFORMATION
  Report Type: 
  Country: None (occurrence: None)
  Receive Date: 20090121
  Receipt Date: 20090121
  Transmission Date: 20090719
  Serious: Yes (Hospitalization)
  Sender: FDA-Public Use
  Company Number: None

PATIENT
  Age: 71 Year
  Sex: Male
  Weight: 150.1406 kg

DRUGS (2)
  1. LISINOPRIL [Suspect]
     Indication: HYPERTENSION
     Dosage: 20 MG DAILY
  2. LASIX [Suspect]
     Indication: HYPERTENSION
     Dosage: 40 MG DAILY

REACTIONS (3)
  - ASTHENIA [None]
  - DIZZINESS POSTURAL [None]
  - HYPOTENSION [None]
